FAERS Safety Report 12208315 (Version 1)
Quarter: 2016Q1

REPORT INFORMATION
  Report Type: Report from Study
  Country: ES (occurrence: ES)
  Receive Date: 20160324
  Receipt Date: 20160324
  Transmission Date: 20160526
  Serious: Yes (Life-Threatening)
  Sender: FDA-Public Use
  Company Number: ES-SA-2015SA145870

PATIENT
  Age: 55 Year
  Sex: Female
  Weight: 70 kg

DRUGS (19)
  1. CIPROFLOXACIN. [Concomitant]
     Active Substance: CIPROFLOXACIN
     Indication: ANTIBIOTIC PROPHYLAXIS
  2. VORICONAZOLE. [Concomitant]
     Active Substance: VORICONAZOLE
     Indication: ANTIFUNGAL PROPHYLAXIS
     Dosage: 200-300MG/12 HOUR
     Route: 048
     Dates: start: 2015, end: 2015
  3. VORICONAZOLE. [Concomitant]
     Active Substance: VORICONAZOLE
     Indication: ANTIFUNGAL TREATMENT
     Dosage: 200-300MG/12 HOUR
     Route: 042
     Dates: start: 20150907, end: 20150923
  4. VORICONAZOLE. [Concomitant]
     Active Substance: VORICONAZOLE
     Indication: ANTIFUNGAL PROPHYLAXIS
     Dosage: 200-300MG/12 HOUR
     Route: 042
     Dates: start: 20150907, end: 20150923
  5. IDARUBICIN [Suspect]
     Active Substance: IDARUBICIN
     Indication: ACUTE MYELOID LEUKAEMIA
     Route: 042
     Dates: start: 20150807, end: 20150809
  6. G-CSF [Suspect]
     Active Substance: GRANULOCYTE COLONY-STIMULATING FACTOR NOS
     Indication: ACUTE MYELOID LEUKAEMIA
     Dates: start: 20150915, end: 20151014
  7. VANCOMYCIN [Concomitant]
     Active Substance: VANCOMYCIN
     Dates: start: 20150907, end: 20150910
  8. MEROPENEM. [Concomitant]
     Active Substance: MEROPENEM
     Dates: start: 20150907, end: 20150917
  9. AMPHOTERICIN B. [Concomitant]
     Active Substance: AMPHOTERICIN B
     Indication: ANTIFUNGAL TREATMENT
     Dosage: 3-5MG/KG FOR 24 HOURS
     Route: 042
     Dates: start: 20150729, end: 20150805
  10. VORICONAZOLE. [Concomitant]
     Active Substance: VORICONAZOLE
     Indication: ANTIFUNGAL TREATMENT
     Dosage: 200-300MG/12 HOUR
     Route: 048
     Dates: start: 2015, end: 2015
  11. AMPHOTERICIN B. [Concomitant]
     Active Substance: AMPHOTERICIN B
     Indication: ANTIFUNGAL TREATMENT
     Dosage: 3-5MG/KG FOR 24 HOURS
     Route: 042
     Dates: start: 20150910, end: 20151022
  12. COTRIMOXAZOLE [Concomitant]
     Active Substance: SULFAMETHOXAZOLE\TRIMETHOPRIM
     Indication: PROPHYLAXIS
     Route: 048
  13. AMIKACIN [Concomitant]
     Active Substance: AMIKACIN
     Dates: start: 20150830, end: 20150907
  14. G-CSF [Suspect]
     Active Substance: GRANULOCYTE COLONY-STIMULATING FACTOR NOS
     Indication: ACUTE MYELOID LEUKAEMIA
     Route: 058
     Dates: start: 20150807, end: 20150810
  15. CASPOFUNGIN [Concomitant]
     Active Substance: CASPOFUNGIN
     Indication: ANTIFUNGAL TREATMENT
     Dosage: 35-50 MG/24 HOUR
     Route: 042
     Dates: start: 20150824, end: 20150825
  16. MOZOBIL [Suspect]
     Active Substance: PLERIXAFOR
     Indication: ACUTE MYELOID LEUKAEMIA
     Dosage: INDUCTION PHASE
     Route: 042
     Dates: start: 20150807, end: 20150810
  17. FLUDARABINE PHOSPHATE. [Suspect]
     Active Substance: FLUDARABINE PHOSPHATE
     Indication: ACUTE MYELOID LEUKAEMIA
     Route: 042
     Dates: start: 20150807, end: 20150810
  18. CYTARABINE. [Suspect]
     Active Substance: CYTARABINE
     Indication: ACUTE MYELOID LEUKAEMIA
     Route: 042
     Dates: start: 20150807, end: 20150810
  19. TIGECYCLINE. [Concomitant]
     Active Substance: TIGECYCLINE
     Dates: start: 20150830, end: 20150907

REACTIONS (1)
  - Pneumonia [Recovering/Resolving]

NARRATIVE: CASE EVENT DATE: 20150915
